FAERS Safety Report 6975730-8 (Version None)
Quarter: 2010Q3

REPORT INFORMATION
  Report Type: 
  Country: None (occurrence: None)
  Receive Date: 20100910
  Receipt Date: 20090313
  Transmission Date: 20110219
  Serious: No
  Sender: FDA-Public Use
  Company Number: US-WYE-H08743909

PATIENT
  Sex: Female
  Weight: 54.48 kg

DRUGS (5)
  1. PRISTIQ [Suspect]
     Indication: DEPRESSION
     Route: 048
     Dates: start: 20090302
  2. PRISTIQ [Suspect]
     Indication: ANXIETY
  3. ALPRAZOLAM [Concomitant]
  4. EFFEXOR XR [Suspect]
     Indication: DEPRESSION
     Route: 048
     Dates: start: 20080401, end: 20090101
  5. EFFEXOR XR [Suspect]
     Indication: ANXIETY
     Dosage: TAPERED OFF TO 37.5 MG
     Route: 048
     Dates: start: 20090101, end: 20090301

REACTIONS (2)
  - BURNING SENSATION [None]
  - DRUG WITHDRAWAL SYNDROME [None]
